FAERS Safety Report 24201402 (Version 1)
Quarter: 2024Q3

REPORT INFORMATION
  Report Type: Spontaneous
  Country: US (occurrence: None)
  Receive Date: 20240812
  Receipt Date: 20240812
  Transmission Date: 20241017
  Serious: No
  Sender: ASTRAZENECA
  Company Number: 2024A175882

PATIENT

DRUGS (1)
  1. AIRSUPRA [Suspect]
     Active Substance: ALBUTEROL SULFATE\BUDESONIDE
     Route: 055

REACTIONS (10)
  - Productive cough [Unknown]
  - Cough [Unknown]
  - Tremor [Unknown]
  - Dysphonia [Unknown]
  - Oropharyngeal pain [Unknown]
  - Odynophagia [Unknown]
  - Nasopharyngitis [Unknown]
  - Asthma [Unknown]
  - Drug ineffective [Unknown]
  - Off label use [Unknown]
